FAERS Safety Report 7633814-5 (Version None)
Quarter: 2011Q3

REPORT INFORMATION
  Report Type: 
  Country: None (occurrence: None)
  Receive Date: 20110725
  Receipt Date: 20110715
  Transmission Date: 20111222
  Serious: Yes (Life-Threatening)
  Sender: FDA-Public Use
  Company Number: JP-GENZYME-THYM-1001896

PATIENT
  Sex: Female
  Weight: 41 kg

DRUGS (8)
  1. CYCLOSPORINE [Concomitant]
     Indication: APLASTIC ANAEMIA
     Dosage: UNK
     Route: 065
     Dates: start: 20100724
  2. FLUCONAZOLE [Concomitant]
     Indication: INFECTION PROPHYLAXIS
     Dosage: UNK
     Route: 065
     Dates: start: 20100429
  3. CORTICOSTEROIDS [Concomitant]
     Indication: APLASTIC ANAEMIA
     Dosage: UNK
     Route: 065
     Dates: start: 20100706, end: 20100710
  4. THYMOGLOBULIN [Suspect]
     Dosage: 147.5 MG, QD
     Route: 042
     Dates: start: 20100710, end: 20100710
  5. NEUPOGEN [Concomitant]
     Indication: APLASTIC ANAEMIA
     Dosage: UNK
     Route: 065
     Dates: start: 20100430, end: 20101025
  6. SULFAMETHOPRIM [Concomitant]
     Indication: INFECTION PROPHYLAXIS
     Dosage: UNK
     Route: 065
     Dates: start: 20100429
  7. THYMOGLOBULIN [Suspect]
     Indication: APLASTIC ANAEMIA
     Dosage: 147.5 MG, QD
     Route: 042
     Dates: start: 20100706, end: 20100709
  8. CYCLOSPORINE [Concomitant]
     Indication: INFECTION PROPHYLAXIS

REACTIONS (2)
  - ANAPHYLACTIC REACTION [None]
  - SEPSIS [None]
